FAERS Safety Report 6140611-9 (Version None)
Quarter: 2009Q2

REPORT INFORMATION
  Report Type: 
  Country: None (occurrence: None)
  Receive Date: 20090402
  Receipt Date: 20090326
  Transmission Date: 20091009
  Serious: Yes (Hospitalization)
  Sender: FDA-Public Use
  Company Number: US-JNJFOC-20090307174

PATIENT
  Sex: Male

DRUGS (6)
  1. RISPERDAL CONSTA [Suspect]
     Route: 030
  2. RISPERDAL CONSTA [Suspect]
     Indication: SCHIZOAFFECTIVE DISORDER
     Route: 030
  3. RISPERDAL [Suspect]
     Indication: SCHIZOAFFECTIVE DISORDER
     Route: 048
  4. KLONOPIN [Concomitant]
     Route: 048
  5. DEPAKOTE [Concomitant]
     Route: 048
  6. COGENTIN [Concomitant]
     Route: 048

REACTIONS (2)
  - HOSPITALISATION [None]
  - THERAPEUTIC RESPONSE DECREASED [None]
